FAERS Safety Report 13960674 (Version 2)
Quarter: 2017Q4

REPORT INFORMATION
  Report Type: Report from Study
  Country: JP (occurrence: JP)
  Receive Date: 20170912
  Receipt Date: 20171023
  Transmission Date: 20180320
  Serious: Yes (Hospitalization, Other)
  Sender: FDA-Public Use
  Company Number: JP-PFIZER INC-2017385385

PATIENT
  Age: 43 Year
  Sex: Female

DRUGS (10)
  1. RHEUMATREX [Suspect]
     Active Substance: METHOTREXATE SODIUM
     Dosage: UNK
  2. TRAMCET [Concomitant]
     Active Substance: ACETAMINOPHEN\TRAMADOL
  3. PREDNISOLONE. [Concomitant]
     Active Substance: PREDNISOLONE
  4. KIPRES [Concomitant]
     Active Substance: MONTELUKAST SODIUM
  5. XELJANZ [Suspect]
     Active Substance: TOFACITINIB CITRATE
     Indication: RHEUMATOID ARTHRITIS
     Dosage: 10 MG, DAILY
     Route: 048
     Dates: end: 20171007
  6. FOLIAMIN [Concomitant]
     Active Substance: FOLIC ACID
  7. METHYCOBAL [Concomitant]
     Active Substance: METHYLCOBALAMIN
  8. MUCODYNE [Concomitant]
     Active Substance: CARBOCYSTEINE
  9. PRANLUKAST [Concomitant]
     Active Substance: PRANLUKAST
  10. RIMATIL [Concomitant]
     Active Substance: BUCILLAMINE

REACTIONS (1)
  - Uterine cancer [Unknown]

NARRATIVE: CASE EVENT DATE: 20170721
